FAERS Safety Report 16183361 (Version 1)
Quarter: 2019Q2

REPORT INFORMATION
  Report Type: Spontaneous
  Country: US (occurrence: US)
  Receive Date: 20190411
  Receipt Date: 20190411
  Transmission Date: 20190711
  Serious: Yes (Other)
  Sender: FDA-Public Use
  Company Number: US-EMCURE PHARMACEUTICALS LTD-2019-EPL-0166

PATIENT
  Age: 71 Year
  Sex: Female

DRUGS (1)
  1. VANCOMYCIN HYDROCHLORIDE. [Suspect]
     Active Substance: VANCOMYCIN HYDROCHLORIDE
     Indication: CATARACT OPERATION
     Dosage: 0.25 MILLIGRAM

REACTIONS (2)
  - Retinal vasculitis [Recovering/Resolving]
  - Haemorrhagic vasculitis [Recovering/Resolving]
